FAERS Safety Report 7269982-7 (Version None)
Quarter: 2011Q1

REPORT INFORMATION
  Report Type: 
  Country: None (occurrence: None)
  Receive Date: 20110202
  Receipt Date: 20110119
  Transmission Date: 20110831
  Serious: Yes (Hospitalization)
  Sender: FDA-Public Use
  Company Number: DE-ACTELION-A-CH2010-41208

PATIENT
  Sex: Female
  Weight: 65 kg

DRUGS (4)
  1. TRACLEER [Suspect]
     Dosage: 62.5 MG, BID
     Route: 048
     Dates: start: 20101213
  2. PANTOPRAZOLE [Concomitant]
  3. TRACLEER [Suspect]
     Dosage: 125 MG, BID
     Route: 048
  4. TRACLEER [Suspect]
     Indication: SKIN ULCER
     Dosage: 62.5 MG, BID
     Route: 048
     Dates: start: 20100928, end: 20101027

REACTIONS (5)
  - ARTHRALGIA [None]
  - SKIN HYPERPIGMENTATION [None]
  - TENDONITIS [None]
  - ENTHESOPATHY [None]
  - TENDON PAIN [None]
